FAERS Safety Report 7622741-5 (Version None)
Quarter: 2011Q3

REPORT INFORMATION
  Report Type: 
  Country: None (occurrence: None)
  Receive Date: 20110712
  Receipt Date: 20110628
  Transmission Date: 20111222
  Serious: Yes (Other)
  Sender: FDA-Public Use
  Company Number: 20110495

PATIENT
  Sex: Female

DRUGS (1)
  1. VENOFER [Suspect]
     Dosage: INTRAVENOUS
     Route: 042
     Dates: start: 20110310

REACTIONS (2)
  - EXTRAVASATION [None]
  - SKIN DISCOLOURATION [None]
